FAERS Safety Report 6652568-2 (Version None)
Quarter: 2010Q1

REPORT INFORMATION
  Report Type: 
  Country: None (occurrence: None)
  Receive Date: 20100325
  Receipt Date: 20100325
  Transmission Date: 20100710
  Serious: Yes (Other)
  Sender: FDA-Public Use
  Company Number: None

PATIENT
  Age: 24 Year
  Sex: Female
  Weight: 61.2356 kg

DRUGS (2)
  1. LOESTRIN 24 FE [Suspect]
     Indication: CONTRACEPTION
     Dosage: 1 MG/20MCG DAILY PO
     Route: 048
     Dates: start: 20090901, end: 20100301
  2. LOESTRIN 24 FE [Suspect]
     Indication: MENSTRUAL DISORDER
     Dosage: 1 MG/20MCG DAILY PO
     Route: 048
     Dates: start: 20090901, end: 20100301

REACTIONS (4)
  - ACNE [None]
  - CONDITION AGGRAVATED [None]
  - DEPRESSION [None]
  - MOOD SWINGS [None]
